FAERS Safety Report 15856388 (Version 2)
Quarter: 2019Q1

REPORT INFORMATION
  Report Type: Spontaneous
  Country: US (occurrence: US)
  Receive Date: 20190123
  Receipt Date: 20190207
  Transmission Date: 20190417
  Serious: No
  Sender: FDA-Public Use
  Company Number: US-LUPIN PHARMACEUTICALS INC.-2019-00152

PATIENT
  Age: 45 Year
  Sex: Female
  Weight: 72.56 kg

DRUGS (1)
  1. BLISOVI 24 FE [Suspect]
     Active Substance: ETHINYL ESTRADIOL\NORETHINDRONE ACETATE
     Indication: ORAL CONTRACEPTION
     Dosage: 1 DF, QD (1 MG/20 MCG)
     Route: 048
     Dates: start: 201804, end: 201809

REACTIONS (1)
  - Adnexa uteri pain [Recovered/Resolved]

NARRATIVE: CASE EVENT DATE: 201803
